FAERS Safety Report 24209645 (Version 1)
Quarter: 2024Q3

REPORT INFORMATION
  Report Type: Spontaneous
  Country: CN (occurrence: CN)
  Receive Date: 20240814
  Receipt Date: 20240814
  Transmission Date: 20241016
  Serious: Yes (Hospitalization, Other)
  Sender: RANBAXY
  Company Number: CN-SUN PHARMACEUTICAL INDUSTRIES LTD-2024R1-462668

PATIENT
  Age: 29 Year
  Sex: Male

DRUGS (2)
  1. METOCLOPRAMIDE [Suspect]
     Active Substance: METOCLOPRAMIDE
     Indication: Haematemesis
     Dosage: 40 MILLIGRAM, BID
     Route: 042
  2. ONDANSETRON [Suspect]
     Active Substance: ONDANSETRON
     Indication: Haematemesis
     Dosage: 40 MILLIGRAM, BID
     Route: 042

REACTIONS (1)
  - Disease progression [Unknown]
